FAERS Safety Report 4549998-1 (Version None)
Quarter: 2005Q1

REPORT INFORMATION
  Report Type: 
  Country: None (occurrence: None)
  Receive Date: 20050110
  Receipt Date: 20041227
  Transmission Date: 20050727
  Serious: Yes (Hospitalization, Other)
  Sender: FDA-Public Use
  Company Number: A-US2004-08303

PATIENT
  Age: 46 Year
  Sex: Female

DRUGS (5)
  1. TRACLEER [Suspect]
     Indication: PULMONARY HYPERTENSION
     Dosage: ORAL
     Route: 048
     Dates: start: 20031001, end: 20040801
  2. COUMADIN [Concomitant]
  3. FLOLAN [Concomitant]
  4. SILDENAFIL [Concomitant]
  5. TREPROSTINIL [Concomitant]

REACTIONS (29)
  - ABDOMINAL DISTENSION [None]
  - ANOREXIA [None]
  - ASCITES [None]
  - BLOOD ALBUMIN DECREASED [None]
  - BLOOD CALCIUM DECREASED [None]
  - CATHETER RELATED INFECTION [None]
  - CHOLELITHIASIS [None]
  - COLITIS [None]
  - COLON NEOPLASM [None]
  - DRUG TOXICITY [None]
  - ENCEPHALOPATHY [None]
  - GALLBLADDER DISORDER [None]
  - GLOBULINS INCREASED [None]
  - HAEMATOCRIT DECREASED [None]
  - HAEMOGLOBIN DECREASED [None]
  - HEPATIC CIRRHOSIS [None]
  - HEPATIC CYST [None]
  - HEPATIC LESION [None]
  - HEPATIC NEOPLASM MALIGNANT [None]
  - HEPATITIS [None]
  - HEPATOTOXICITY [None]
  - HYPERGLYCAEMIA [None]
  - HYPOALBUMINAEMIA [None]
  - INTERNATIONAL NORMALISED RATIO INCREASED [None]
  - NAUSEA [None]
  - PLATELET COUNT DECREASED [None]
  - PROTEIN TOTAL DECREASED [None]
  - SPLENOMEGALY [None]
  - WEIGHT DECREASED [None]
